FAERS Safety Report 16315775 (Version 2)
Quarter: 2019Q2

REPORT INFORMATION
  Report Type: Spontaneous
  Country: US (occurrence: US)
  Receive Date: 20190515
  Receipt Date: 20190607
  Transmission Date: 20190711
  Serious: No
  Sender: FDA-Public Use
  Company Number: US-ASTRAZENECA-2019SE59775

PATIENT
  Age: 30515 Day
  Sex: Female
  Weight: 63.5 kg

DRUGS (1)
  1. SYMBICORT [Suspect]
     Active Substance: BUDESONIDE\FORMOTEROL FUMARATE DIHYDRATE
     Indication: ASTHMA
     Dosage: 160/4.5 MCG, 2 PUFFS, BID
     Route: 055

REACTIONS (4)
  - Overweight [Unknown]
  - Incorrect dose administered [Unknown]
  - Hypoacusis [Unknown]
  - Device issue [Unknown]

NARRATIVE: CASE EVENT DATE: 20190415
